FAERS Safety Report 4582549-4 (Version None)
Quarter: 2005Q1

REPORT INFORMATION
  Report Type: 
  Country: None (occurrence: None)
  Receive Date: 20050215
  Receipt Date: 20050203
  Transmission Date: 20050727
  Serious: Yes (Hospitalization)
  Sender: FDA-Public Use
  Company Number: ES-JNJFOC-20050203108

PATIENT
  Age: 69 Year
  Sex: Male

DRUGS (4)
  1. ZALDIAR [Suspect]
     Indication: INTERVERTEBRAL DISC DISPLACEMENT
     Route: 049
  2. NOLOTIL [Concomitant]
     Route: 049
  3. NOLOTIL [Concomitant]
     Indication: INTERVERTEBRAL DISC DISPLACEMENT
     Route: 049
  4. TRANGOREX [Concomitant]
     Route: 065

REACTIONS (4)
  - ANGINA PECTORIS [None]
  - ARRHYTHMIA SUPRAVENTRICULAR [None]
  - HALLUCINATION [None]
  - HYPERTENSION [None]
